FAERS Safety Report 12281851 (Version 1)
Quarter: 2016Q2

REPORT INFORMATION
  Report Type: Spontaneous
  Country: US (occurrence: None)
  Receive Date: 20160418
  Receipt Date: 20160418
  Transmission Date: 20160815
  Serious: No
  Sender: FDA-Public Use
  Company Number: None

PATIENT
  Age: 22 Year
  Sex: Female
  Weight: 46.72 kg

DRUGS (3)
  1. XYZAL [Suspect]
     Active Substance: LEVOCETIRIZINE DIHYDROCHLORIDE
     Indication: MULTIPLE ALLERGIES
     Route: 048
     Dates: start: 20160410, end: 20160411
  2. LPTATADIN [Concomitant]
  3. OMEPRAZOLE. [Concomitant]
     Active Substance: OMEPRAZOLE

REACTIONS (9)
  - Lip dry [None]
  - Lip discolouration [None]
  - Dry skin [None]
  - Burning sensation [None]
  - Skin exfoliation [None]
  - Lip disorder [None]
  - Skin disorder [None]
  - Feeding disorder [None]
  - Oral discomfort [None]

NARRATIVE: CASE EVENT DATE: 20160410
